FAERS Safety Report 18119257 (Version 1)
Quarter: 2020Q3

REPORT INFORMATION
  Report Type: Spontaneous
  Country: US (occurrence: US)
  Receive Date: 20200806
  Receipt Date: 20200806
  Transmission Date: 20201103
  Serious: No
  Sender: FDA-Public Use
  Company Number: None

PATIENT
  Age: 68 Year
  Sex: Male
  Weight: 74.25 kg

DRUGS (1)
  1. PACHA HAND SANITIZER FRENCH LAVENDER [Suspect]
     Active Substance: ALCOHOL
     Indication: COVID-19 PROPHYLAXIS
     Dosage: ?          OTHER STRENGTH:N/A;QUANTITY:1 TEASPOON(S);?
     Route: 061
     Dates: start: 20200803, end: 20200805

REACTIONS (2)
  - Urticaria [None]
  - Sleep disorder [None]

NARRATIVE: CASE EVENT DATE: 20200803
